FAERS Safety Report 16316778 (Version 1)
Quarter: 2019Q2

REPORT INFORMATION
  Report Type: Spontaneous
  Country: FR (occurrence: FR)
  Receive Date: 20190515
  Receipt Date: 20190515
  Transmission Date: 20190711
  Serious: Yes (Death)
  Sender: FDA-Public Use
  Company Number: PHHY2019FR111131

PATIENT
  Age: 11 Day
  Sex: Male
  Weight: 2.79 kg

DRUGS (2)
  1. TAREG [Suspect]
     Active Substance: VALSARTAN
     Indication: HYPERTENSION
     Dosage: 3 MG/ML, UNK
     Route: 048
  2. PROGLYCEM [Suspect]
     Active Substance: DIAZOXIDE
     Indication: HYPERINSULINISM
     Dosage: 5 MG/KG, UNK
     Route: 048

REACTIONS (1)
  - Oedema [Fatal]

NARRATIVE: CASE EVENT DATE: 201901
